FAERS Safety Report 10555381 (Version 2)
Quarter: 2014Q4

REPORT INFORMATION
  Report Type: Spontaneous
  Country: PT (occurrence: PT)
  Receive Date: 20141030
  Receipt Date: 20141110
  Transmission Date: 20150529
  Serious: Yes (Other)
  Sender: FDA-Public Use
  Company Number: PT-WATSON-2014-23143

PATIENT
  Age: 36 Year
  Sex: Female

DRUGS (5)
  1. SUFENTA [Concomitant]
     Active Substance: SUFENTANIL CITRATE
     Indication: CAESAREAN SECTION
     Dosage: UNK
     Route: 065
  2. EPHEDRINE [Concomitant]
     Active Substance: EPHEDRINE
     Indication: CAESAREAN SECTION
     Dosage: UNK
     Route: 065
  3. CEFAZOLIN (UNKNOWN) [Suspect]
     Active Substance: CEFAZOLIN
     Indication: CAESAREAN SECTION
     Dosage: UNK
     Route: 065
  4. OXYTOCIN. [Concomitant]
     Active Substance: OXYTOCIN
     Indication: CAESAREAN SECTION
     Dosage: UNK
     Route: 065
  5. ROPIVACAINE [Concomitant]
     Active Substance: ROPIVACAINE
     Indication: CAESAREAN SECTION
     Dosage: UNK
     Route: 065

REACTIONS (4)
  - Maternal exposure during delivery [Unknown]
  - Angioedema [Unknown]
  - Hypotension [Unknown]
  - Erythema [Unknown]
